FAERS Safety Report 6187547-5 (Version None)
Quarter: 2009Q2

REPORT INFORMATION
  Report Type: 
  Country: None (occurrence: None)
  Receive Date: 20090508
  Receipt Date: 20090424
  Transmission Date: 20091009
  Serious: Yes (Hospitalization, Other)
  Sender: FDA-Public Use
  Company Number: 2009AL000106

PATIENT
  Age: 60 Year
  Sex: Male

DRUGS (2)
  1. TRAMADOL HYDROCHLORIDE [Suspect]
     Indication: BACK PAIN
     Dosage: 50 MG;TID;PO
     Route: 048
  2. PREGABALIN [Concomitant]

REACTIONS (9)
  - CHEST DISCOMFORT [None]
  - DIZZINESS [None]
  - DRUG INTERACTION [None]
  - FALL [None]
  - HYPERHIDROSIS [None]
  - MALAISE [None]
  - SYNCOPE [None]
  - TACHYCARDIA [None]
  - TREMOR [None]
